FAERS Safety Report 8156886-0 (Version None)
Quarter: 2012Q1

REPORT INFORMATION
  Report Type: 
  Country: None (occurrence: None)
  Receive Date: 20120222
  Receipt Date: 20120216
  Transmission Date: 20120608
  Serious: Yes (Death)
  Sender: FDA-Public Use
  Company Number: FR-GLAXOSMITHKLINE-B0780104A

PATIENT
  Sex: Female

DRUGS (3)
  1. REVATIO [Concomitant]
     Indication: PULMONARY ARTERIAL HYPERTENSION
  2. FLOLAN [Suspect]
     Indication: PULMONARY ARTERIAL HYPERTENSION
  3. TRACLEER [Concomitant]
     Indication: PULMONARY ARTERIAL HYPERTENSION

REACTIONS (1)
  - DISEASE PROGRESSION [None]
